FAERS Safety Report 5149326-7 (Version None)
Quarter: 2006Q4

REPORT INFORMATION
  Report Type: 
  Country: None (occurrence: None)
  Receive Date: 20061113
  Receipt Date: 20051108
  Transmission Date: 20070319
  Serious: No
  Sender: FDA-Public Use
  Company Number: US-GLAXOSMITHKLINE-A0581461A

PATIENT

DRUGS (9)
  1. COREG [Suspect]
     Route: 048
  2. LASIX [Concomitant]
  3. ALLOPURINOL [Concomitant]
  4. METOPROLOL TARTRATE [Concomitant]
  5. ISOSORBIDE [Concomitant]
  6. LISINOPRIL [Concomitant]
  7. SYNTHROID [Concomitant]
  8. POTASSIUM ACETATE [Concomitant]
  9. NPH INSULIN [Concomitant]

REACTIONS (1)
  - TINNITUS [None]
